FAERS Safety Report 7657454-7 (Version None)
Quarter: 2011Q3

REPORT INFORMATION
  Report Type: 
  Country: None (occurrence: None)
  Receive Date: 20110804
  Receipt Date: 20110801
  Transmission Date: 20111222
  Serious: Yes (Hospitalization)
  Sender: FDA-Public Use
  Company Number: GR-ABBOTT-11P-066-0843256-00

PATIENT
  Sex: Male
  Weight: 92 kg

DRUGS (17)
  1. LIPITOR [Concomitant]
     Indication: DYSLIPIDAEMIA
     Route: 048
     Dates: start: 20100914
  2. MIRCERA [Concomitant]
     Indication: ANAEMIA
     Route: 058
     Dates: start: 20110105
  3. CARVEDIOL [Concomitant]
     Indication: CORONARY ARTERY DISEASE
     Dosage: (6.25X3) MG /DAILY
     Route: 048
     Dates: start: 20090622
  4. SODIUM POLYSTYRENE SULFONATE [Concomitant]
     Indication: PRODUCT USED FOR UNKNOWN INDICATION
     Route: 048
     Dates: start: 20100914
  5. ALLOPURINOL [Concomitant]
     Indication: HYPERURICAEMIA
     Route: 048
     Dates: start: 20090622
  6. CARVEDIOL [Concomitant]
     Indication: HYPERTENSION
  7. FUROSEMIDE [Concomitant]
     Indication: HYPERTENSION
     Route: 048
     Dates: start: 20060622
  8. LOSARTAN POTASSIUM/HYDROCHLOROTHIAZIDE [Concomitant]
     Indication: CORONARY ARTERY DISEASE
     Dosage: (50 + 12.5) MICROGRAMS/DAILY
     Route: 048
     Dates: start: 20090622
  9. LOSARTAN POTASSIUM/HYDROCHLOROTHIAZIDE [Concomitant]
     Indication: HYPERTENSION
  10. CARVEDIOL [Concomitant]
     Indication: CARDIAC FAILURE
  11. ACETYLSALICYLIC ACID [Concomitant]
     Indication: CORONARY ARTERY DISEASE
     Route: 048
     Dates: start: 20090622
  12. LANTUS [Concomitant]
     Indication: TYPE 2 DIABETES MELLITUS
     Route: 058
     Dates: start: 20090622
  13. MAXEPA [Concomitant]
     Indication: HYPERTRIGLYCERIDAEMIA
     Dosage: 3X2/DAILY
     Route: 048
     Dates: start: 20100914
  14. ZEMPLAR [Suspect]
     Indication: RENAL FAILURE CHRONIC
     Route: 048
     Dates: start: 20090622
  15. LOSARTAN POTASSIUM/HYDROCHLOROTHIAZIDE [Concomitant]
     Indication: CARDIAC FAILURE
  16. SEVELAMER [Concomitant]
     Indication: HYPERPHOSPHATAEMIA
     Dates: start: 20100914
  17. MIRCERA [Concomitant]
     Indication: RENAL FAILURE CHRONIC

REACTIONS (2)
  - ACUTE PULMONARY OEDEMA [None]
  - ATRIAL FIBRILLATION [None]
